FAERS Safety Report 10243622 (Version 2)
Quarter: 2014Q4

REPORT INFORMATION
  Report Type: Spontaneous
  Country: US (occurrence: US)
  Receive Date: 20140618
  Receipt Date: 20141118
  Transmission Date: 20150528
  Serious: No
  Sender: FDA-Public Use
  Company Number: US-PFIZER INC-2014162519

PATIENT
  Age: 66 Year
  Sex: Male

DRUGS (3)
  1. INLYTA [Suspect]
     Active Substance: AXITINIB
     Indication: RENAL CANCER
     Dosage: 5 MG, 2X/DAY
     Dates: start: 20140529
  2. INLYTA [Suspect]
     Active Substance: AXITINIB
     Dosage: 14 MG
     Dates: start: 2014
  3. INLYTA [Suspect]
     Active Substance: AXITINIB
     Dosage: 10 MG
     Dates: start: 2014

REACTIONS (2)
  - Neuropathy peripheral [Unknown]
  - Dysphonia [Unknown]

NARRATIVE: CASE EVENT DATE: 2014
